FAERS Safety Report 5142661-8 (Version None)
Quarter: 2006Q4

REPORT INFORMATION
  Report Type: 
  Country: None (occurrence: None)
  Receive Date: 20061027
  Receipt Date: 20061013
  Transmission Date: 20070319
  Serious: Yes (Hospitalization)
  Sender: FDA-Public Use
  Company Number: US200606004744

PATIENT
  Age: 36 Year
  Sex: Female

DRUGS (4)
  1. HUMULIN N [Suspect]
     Indication: BLOOD GLUCOSE INCREASED
     Dosage: 12 U, EACH MORNING, UNK
     Dates: start: 20060601
  2. HUMULIN N [Suspect]
     Dosage: 16 U, EACH EVENING, UNK
     Dates: start: 20060601
  3. HUMULIN N [Suspect]
     Dosage: 11 U, EACH MORNING, UNK
     Dates: start: 20060118
  4. HUMULIN N [Suspect]
     Dosage: 15 U, EACH EVENING, UNK
     Dates: start: 20060118

REACTIONS (6)
  - BLOOD GLUCOSE INCREASED [None]
  - DRUG EXPOSURE DURING PREGNANCY [None]
  - DRUG INEFFECTIVE [None]
  - PHARMACEUTICAL PRODUCT COMPLAINT [None]
  - PREMATURE LABOUR [None]
  - PULMONARY EMBOLISM [None]
